FAERS Safety Report 21527010 (Version 2)
Quarter: 2022Q4

REPORT INFORMATION
  Report Type: Other
  Country: KZ (occurrence: KZ)
  Receive Date: 20221031
  Receipt Date: 20221206
  Transmission Date: 20230112
  Serious: Yes (Death, Other)
  Sender: FDA-Public Use
  Company Number: KZ-MACLEODS PHARMA EU LTD-MAC2022038057

PATIENT

DRUGS (8)
  1. PYRAZINAMIDE [Suspect]
     Active Substance: PYRAZINAMIDE
     Indication: Pulmonary tuberculosis
     Dosage: UNK; 1500 MG
     Route: 048
     Dates: start: 20220210
  2. Levozin 500 [Concomitant]
     Indication: Product used for unknown indication
     Dosage: UNK, NOBEL ALMATY PHARMACEUTICAL FACTORY; KAZAKHSTAN
     Route: 065
  3. Amizolide [Concomitant]
     Indication: Product used for unknown indication
     Dosage: UNK, ABDI IBRAHIM GLOBAL PHARM; RUSSIA
     Route: 065
  4. LEVOFLOXACIN [Concomitant]
     Active Substance: LEVOFLOXACIN
     Indication: Product used for unknown indication
     Dosage: 750 MILLIGRAM
     Route: 065
     Dates: start: 20220210
  5. CYCLOSERINE [Concomitant]
     Active Substance: CYCLOSERINE
     Indication: Product used for unknown indication
     Dosage: 2 DOSAGE FORM; 500 (2TB)
     Route: 065
     Dates: start: 20220210
  6. LINEZOLID [Concomitant]
     Active Substance: LINEZOLID
     Indication: Product used for unknown indication
     Dosage: 1 DOSAGE FORM
     Route: 065
     Dates: start: 20220210
  7. BEDAQUILINE [Concomitant]
     Active Substance: BEDAQUILINE
     Indication: Product used for unknown indication
     Dosage: 4 DOSAGE FORM (400MG 4T * 1 TIME A DAY)
     Route: 065
     Dates: start: 20220210
  8. BEDAQUILINE [Concomitant]
     Active Substance: BEDAQUILINE
     Dosage: 200 MILLIGRAM; THREE TIMES A WEEK
     Route: 065

REACTIONS (6)
  - Cardiopulmonary failure [Fatal]
  - Hepatitis toxic [Not Recovered/Not Resolved]
  - Bilirubin conjugated increased [Not Recovered/Not Resolved]
  - Bilirubin conjugated increased [Not Recovered/Not Resolved]
  - Nausea [Unknown]
  - Vomiting [Unknown]

NARRATIVE: CASE EVENT DATE: 20220817
